FAERS Safety Report 9147626 (Version 1)
Quarter: 2013Q1

REPORT INFORMATION
  Report Type: Spontaneous
  Country: US (occurrence: US)
  Receive Date: 20130307
  Receipt Date: 20130307
  Transmission Date: 20140127
  Serious: Yes (Hospitalization)
  Sender: FDA-Public Use
  Company Number: US-009507513-1303USA001897

PATIENT
  Age: 30 Year
  Sex: Male

DRUGS (10)
  1. SINGULAIR [Suspect]
  2. PULMICORT [Concomitant]
  3. ATROVENT [Concomitant]
  4. BRICANYL [Concomitant]
  5. EBASTINE [Concomitant]
  6. SYMBICORT [Concomitant]
  7. AIROMIR [Concomitant]
  8. SOLUPRED [Concomitant]
  9. XOLAIR [Concomitant]
     Dosage: UNKNOWN
  10. XOLAIR [Concomitant]
     Dosage: UNKNOWN

REACTIONS (3)
  - Tendon disorder [Unknown]
  - Arthralgia [Unknown]
  - Amyotrophy [Unknown]
